FAERS Safety Report 8149492-5 (Version None)
Quarter: 2012Q1

REPORT INFORMATION
  Report Type: 
  Country: None (occurrence: None)
  Receive Date: 20120218
  Receipt Date: 20111020
  Transmission Date: 20120608
  Serious: No
  Sender: FDA-Public Use
  Company Number: US-ALLERGAN-1113931US

PATIENT
  Age: 69 Year
  Sex: Female

DRUGS (7)
  1. ALPRAZOLAM [Concomitant]
     Indication: SLEEP DISORDER
  2. BOTOX COSMETIC [Suspect]
     Indication: SKIN WRINKLING
     Dosage: UNK
     Route: 030
     Dates: start: 20110817, end: 20110817
  3. BOTOX COSMETIC [Suspect]
     Dosage: UNK
     Dates: start: 20100401, end: 20100401
  4. PANTOPRAZOLE [Concomitant]
     Indication: GASTROOESOPHAGEAL REFLUX DISEASE
     Dosage: 40 MG, UNK
     Route: 048
  5. ALPRAZOLAM [Concomitant]
     Indication: ANXIETY
     Dosage: 0.5 MG, QD
     Route: 048
  6. MECLIZINE [Concomitant]
     Indication: VERTIGO
     Dosage: UNK
     Route: 048
  7. MOBIC [Concomitant]
     Indication: ARTHRITIS
     Dosage: 7.5 MG, QD
     Route: 048

REACTIONS (3)
  - SKIN WRINKLING [None]
  - HAEMATOMA [None]
  - SWELLING FACE [None]
